FAERS Safety Report 17912259 (Version 1)
Quarter: 2020Q2

REPORT INFORMATION
  Report Type: Report from Study
  Country: JP (occurrence: JP)
  Receive Date: 20200618
  Receipt Date: 20200618
  Transmission Date: 20200714
  Serious: Yes (Other)
  Sender: FDA-Public Use
  Company Number: JP-KYOWAKIRIN-2020AKK010062

PATIENT

DRUGS (21)
  1. DOXORUBICIN HYDROCHLORIDE. [Suspect]
     Active Substance: DOXORUBICIN HYDROCHLORIDE
     Indication: ADULT T-CELL LYMPHOMA/LEUKAEMIA
     Dosage: UNK
     Route: 065
     Dates: start: 20180419
  2. DIPHENHYDRAMINE. [Concomitant]
     Active Substance: DIPHENHYDRAMINE
     Dosage: UNK
     Route: 065
     Dates: start: 20180531, end: 20180531
  3. AMLODIPINE [AMLODIPINE BESILATE] [Concomitant]
     Active Substance: AMLODIPINE BESYLATE
     Dosage: UNK
     Route: 048
  4. MOGAMULIZUMAB [Suspect]
     Active Substance: MOGAMULIZUMAB
     Dosage: 1 MG/KG
     Route: 041
     Dates: start: 20180531, end: 20180531
  5. VINCRISTINE SULFATE. [Suspect]
     Active Substance: VINCRISTINE SULFATE
     Indication: ADULT T-CELL LYMPHOMA/LEUKAEMIA
     Dosage: UNK
     Route: 065
     Dates: start: 20180419
  6. DIPHENHYDRAMINE. [Concomitant]
     Active Substance: DIPHENHYDRAMINE
     Indication: PROPHYLAXIS
     Dosage: UNK
     Route: 065
     Dates: start: 20180514, end: 20180514
  7. ETOPOSIDE. [Suspect]
     Active Substance: ETOPOSIDE
     Indication: ADULT T-CELL LYMPHOMA/LEUKAEMIA
     Dosage: UNK
     Route: 065
     Dates: start: 20180419
  8. PREDNISOLONE. [Suspect]
     Active Substance: PREDNISOLONE
     Indication: ADULT T-CELL LYMPHOMA/LEUKAEMIA
     Dosage: UNK
     Route: 065
     Dates: start: 20180419
  9. ACETAMINOPHEN. [Concomitant]
     Active Substance: ACETAMINOPHEN
     Dosage: UNK
     Route: 065
     Dates: start: 20180531, end: 20180531
  10. THEOPHYLLINE [Concomitant]
     Active Substance: THEOPHYLLINE ANHYDROUS
     Dosage: UNK
     Route: 048
  11. CYCLOPHOSPHAMIDE. [Suspect]
     Active Substance: CYCLOPHOSPHAMIDE
     Indication: ADULT T-CELL LYMPHOMA/LEUKAEMIA
     Dosage: UNK
     Route: 065
     Dates: start: 20180419
  12. SAXIZON [Concomitant]
     Active Substance: HYDROCORTISONE SODIUM SUCCINATE
     Indication: PROPHYLAXIS
     Dosage: 100 MG
     Route: 065
     Dates: start: 20180514, end: 20180514
  13. FLUCONAZOLE. [Concomitant]
     Active Substance: FLUCONAZOLE
     Indication: INFECTION PROPHYLAXIS
     Dosage: UNK
     Route: 048
     Dates: start: 20180514
  14. CALFINA [ALFACALCIDOL] [Concomitant]
     Active Substance: ALFACALCIDOL
     Dosage: UNK
     Route: 048
  15. MUCOSAL [AMBROXOL HYDROCHLORIDE] [Concomitant]
     Dosage: UNK
     Route: 048
  16. OLMETEC [Concomitant]
     Active Substance: OLMESARTAN MEDOXOMIL
     Dosage: UNK
     Route: 048
  17. PITAVASTATIN CALCIUM [Concomitant]
     Active Substance: PITAVASTATIN CALCIUM
     Dosage: UNK
     Route: 048
  18. SAXIZON [Concomitant]
     Active Substance: HYDROCORTISONE SODIUM SUCCINATE
     Dosage: 100 MG
     Route: 065
     Dates: start: 20180531, end: 20180531
  19. ACICLOVIR [Concomitant]
     Active Substance: ACYCLOVIR
     Indication: INFECTION PROPHYLAXIS
     Dosage: UNK
     Route: 048
     Dates: start: 20180514
  20. MOGAMULIZUMAB [Suspect]
     Active Substance: MOGAMULIZUMAB
     Indication: ADULT T-CELL LYMPHOMA/LEUKAEMIA
     Dosage: 1 MG/KG
     Route: 041
     Dates: start: 20180514, end: 20180514
  21. ACETAMINOPHEN. [Concomitant]
     Active Substance: ACETAMINOPHEN
     Indication: PROPHYLAXIS
     Dosage: UNK
     Route: 065
     Dates: start: 20180514, end: 20180514

REACTIONS (4)
  - Platelet count decreased [Recovered/Resolved]
  - Neutrophil count decreased [Recovered/Resolved]
  - White blood cell count decreased [Recovered/Resolved]
  - Haemoglobin decreased [Recovering/Resolving]

NARRATIVE: CASE EVENT DATE: 20180521
